FAERS Safety Report 7192313-8 (Version None)
Quarter: 2010Q4

REPORT INFORMATION
  Report Type: 
  Country: None (occurrence: None)
  Receive Date: 20101223
  Receipt Date: 20101210
  Transmission Date: 20110411
  Serious: Yes (Other)
  Sender: FDA-Public Use
  Company Number: US-BAYER-2010-004390

PATIENT
  Sex: Female

DRUGS (2)
  1. YASMIN [Suspect]
     Route: 048
  2. OCELLA [Suspect]
     Dosage: UNK
     Route: 048
     Dates: start: 20060901, end: 20090901

REACTIONS (1)
  - GALLBLADDER DISORDER [None]
